FAERS Safety Report 21076471 (Version 4)
Quarter: 2022Q3

REPORT INFORMATION
  Report Type: Spontaneous
  Country: JP (occurrence: JP)
  Receive Date: 20220713
  Receipt Date: 20220905
  Transmission Date: 20221027
  Serious: Yes (Death, Hospitalization, Other)
  Sender: FDA-Public Use
  Company Number: JP-GSKNCCC-Case-01520958_AE-59499

PATIENT

DRUGS (3)
  1. SEREVENT DISKUS [Suspect]
     Active Substance: SALMETEROL XINAFOATE
     Dosage: ONE INHALATION PER DOSE, TWICE A DAY
     Route: 055
     Dates: start: 20220131
  2. FEBUXOSTAT [Concomitant]
     Active Substance: FEBUXOSTAT
     Indication: Hyperuricaemia
     Dosage: 10 MG, QD
     Dates: start: 20191024
  3. LIPITOR [Concomitant]
     Active Substance: ATORVASTATIN CALCIUM
     Indication: Blood cholesterol increased
     Dosage: 5 MG, QD
     Dates: start: 20191024

REACTIONS (6)
  - Metastases to bone [Recovering/Resolving]
  - Neck pain [Recovering/Resolving]
  - Cervical vertebral fracture [Recovering/Resolving]
  - Comminuted fracture [Recovering/Resolving]
  - Obstructive airways disorder [Fatal]
  - Asphyxia [Fatal]

NARRATIVE: CASE EVENT DATE: 20220501
